FAERS Safety Report 5113736-4 (Version None)
Quarter: 2006Q3

REPORT INFORMATION
  Report Type: 
  Country: None (occurrence: None)
  Receive Date: 20060921
  Receipt Date: 20060921
  Transmission Date: 20061208
  Serious: Yes (Hospitalization)
  Sender: FDA-Public Use
  Company Number: None

PATIENT
  Age: 73 Year
  Sex: Male
  Weight: 68 kg

DRUGS (12)
  1. HEPARIN [Suspect]
     Indication: DEEP VEIN THROMBOSIS
     Dosage: 500U/HR IV CONTINUOUS
     Route: 042
     Dates: start: 20060328, end: 20060330
  2. REGULAR SSI WITH AMIODARONE [Concomitant]
  3. ATORVASTATIN [Concomitant]
  4. BISACODYL [Concomitant]
  5. CARBIDOPA [Concomitant]
  6. LEVODOPA [Concomitant]
  7. CEFEPIME [Concomitant]
  8. PHENYLEPHRINE [Concomitant]
  9. FENTANYL [Concomitant]
  10. LANSOPRAZOLE [Concomitant]
  11. SENNA [Concomitant]
  12. TRAZODONE HCL [Concomitant]

REACTIONS (1)
  - HEPARIN-INDUCED THROMBOCYTOPENIA [None]
